FAERS Safety Report 6414521-3 (Version None)
Quarter: 2009Q4

REPORT INFORMATION
  Report Type: 
  Country: None (occurrence: None)
  Receive Date: 20091026
  Receipt Date: 20091019
  Transmission Date: 20100525
  Serious: Yes (Other)
  Sender: FDA-Public Use
  Company Number: CA-JNJCH-2009027523

PATIENT
  Sex: Female

DRUGS (1)
  1. REACTINE EXTRA STRENGTH [Suspect]
     Indication: DRUG USE FOR UNKNOWN INDICATION
     Dosage: TEXT:ONE TABLET DAILY
     Route: 048
     Dates: start: 20091012, end: 20091017

REACTIONS (4)
  - DRUG INEFFECTIVE [None]
  - ERYTHEMA [None]
  - FLUID RETENTION [None]
  - HERPES ZOSTER [None]
